FAERS Safety Report 4361113-6 (Version None)
Quarter: 2004Q2

REPORT INFORMATION
  Report Type: 
  Country: None (occurrence: None)
  Receive Date: 20040520
  Receipt Date: 20030411
  Transmission Date: 20050107
  Serious: Yes (Disabling)
  Sender: FDA-Public Use
  Company Number: US-BRISTOL-MYERS SQUIBB COMPANY-12239299

PATIENT
  Age: 66 Year
  Sex: Male
  Weight: 80 kg

DRUGS (6)
  1. PRAVACHOL [Suspect]
     Indication: HYPERLIPIDAEMIA
     Dosage: DOSE INCREASED TO 40MG IN JAN-2003
     Route: 048
     Dates: start: 20020901, end: 20030313
  2. PRINIVIL [Concomitant]
  3. METOPROLOL [Concomitant]
  4. CHLORPROMAZINE [Concomitant]
  5. ASPIRIN [Concomitant]
  6. CLARITIN-D [Concomitant]

REACTIONS (16)
  - BLOOD CREATINE PHOSPHOKINASE INCREASED [None]
  - BRONCHIAL INFECTION [None]
  - CYST [None]
  - DYSPHAGIA [None]
  - DYSPNOEA [None]
  - HEART RATE IRREGULAR [None]
  - HYPOAESTHESIA [None]
  - LOCALISED INFECTION [None]
  - LUNG INFECTION [None]
  - MUSCULAR WEAKNESS [None]
  - MUSCULOSKELETAL STIFFNESS [None]
  - MYOGLOBIN BLOOD INCREASED [None]
  - NERVE COMPRESSION [None]
  - PAIN [None]
  - POLYMYOSITIS [None]
  - WEIGHT DECREASED [None]
